FAERS Safety Report 7458253-1 (Version None)
Quarter: 2011Q2

REPORT INFORMATION
  Report Type: 
  Country: None (occurrence: None)
  Receive Date: 20110504
  Receipt Date: 20110427
  Transmission Date: 20111010
  Serious: Yes (Hospitalization, Other)
  Sender: FDA-Public Use
  Company Number: US-MERCK-1012USA01899

PATIENT
  Age: 52 Year
  Sex: Female
  Weight: 76 kg

DRUGS (6)
  1. METOPROLOL [Concomitant]
     Route: 065
     Dates: start: 20040101
  2. VITAMINS (UNSPECIFIED) [Concomitant]
     Route: 065
  3. POTASSIUM (UNSPECIFIED) [Concomitant]
     Route: 065
     Dates: start: 20050101
  4. FOSAMAX [Suspect]
     Indication: OSTEOPENIA
     Route: 048
     Dates: start: 20040501, end: 20100314
  5. ALENDRONATE SODIUM [Suspect]
     Route: 048
     Dates: start: 20090401, end: 20100201
  6. FOSAMAX [Suspect]
     Indication: OSTEOPOROSIS PROPHYLAXIS
     Route: 048
     Dates: start: 20040501, end: 20100314

REACTIONS (37)
  - PNEUMONIA [None]
  - THYROID DISORDER [None]
  - PULMONARY SARCOIDOSIS [None]
  - CONTUSION [None]
  - HYPOKALAEMIA [None]
  - UPPER RESPIRATORY TRACT INFECTION [None]
  - HUMERUS FRACTURE [None]
  - PAIN IN EXTREMITY [None]
  - CONJUNCTIVAL HAEMORRHAGE [None]
  - COUGH [None]
  - BRONCHIECTASIS [None]
  - FALL [None]
  - HYPERLIPIDAEMIA [None]
  - UVEITIS [None]
  - PLEURAL FIBROSIS [None]
  - FOOT FRACTURE [None]
  - TOOTH DEPOSIT [None]
  - PALPITATIONS [None]
  - LUNG DISORDER [None]
  - PYREXIA [None]
  - BREAST DISORDER [None]
  - HAEMORRHAGIC ANAEMIA [None]
  - GLUCOSE-6-PHOSPHATE DEHYDROGENASE DEFICIENCY [None]
  - HYPERPLASIA [None]
  - WHEEZING [None]
  - CALCIUM DEFICIENCY [None]
  - DENTAL NECROSIS [None]
  - THYROID NEOPLASM [None]
  - CALCULUS URETERIC [None]
  - BREAST MASS [None]
  - FEMUR FRACTURE [None]
  - BREAST CALCIFICATIONS [None]
  - LOW TURNOVER OSTEOPATHY [None]
  - VITAMIN D DEFICIENCY [None]
  - TOOTH INJURY [None]
  - TOOTH DISCOLOURATION [None]
  - RESTRICTIVE PULMONARY DISEASE [None]
